FAERS Safety Report 6375963-8 (Version None)
Quarter: 2009Q3

REPORT INFORMATION
  Report Type: 
  Country: None (occurrence: None)
  Receive Date: 20090924
  Receipt Date: 20090917
  Transmission Date: 20100115
  Serious: No
  Sender: FDA-Public Use
  Company Number: US-AMGEN-QUU362500

PATIENT
  Sex: Female
  Weight: 50.8 kg

DRUGS (1)
  1. ENBREL [Suspect]
     Indication: PSORIASIS
     Route: 058
     Dates: start: 20040524, end: 20090801

REACTIONS (1)
  - TUBERCULIN TEST POSITIVE [None]
